FAERS Safety Report 5660480-0 (Version None)
Quarter: 2008Q1

REPORT INFORMATION
  Report Type: 
  Country: None (occurrence: None)
  Receive Date: 20080306
  Receipt Date: 20080221
  Transmission Date: 20080703
  Serious: Yes (Hospitalization)
  Sender: FDA-Public Use
  Company Number: GXKR2008IT01913

PATIENT
  Age: 60 Year
  Sex: Female

DRUGS (5)
  1. TICLOPIDINE           (TICLOPIDINE) UNKNOWN [Suspect]
     Indication: THROMBOSIS PROPHYLAXIS
     Dosage: 1 DF , ORAL
     Route: 048
     Dates: start: 20000101, end: 20080113
  2. VOLTAREN [Suspect]
     Indication: ARTHRALGIA
     Dosage: 2 DF, ORAL
     Route: 048
     Dates: start: 20080111, end: 20080113
  3. ATENOLOL [Concomitant]
  4. RAMIPRIL [Concomitant]
  5. GLUCOPHAGE [Concomitant]

REACTIONS (4)
  - ANAEMIA [None]
  - DUODENAL ULCER [None]
  - GASTROINTESTINAL HAEMORRHAGE [None]
  - HAEMATEMESIS [None]
